FAERS Safety Report 11415996 (Version 1)
Quarter: 2015Q3

REPORT INFORMATION
  Report Type: Spontaneous
  Country: US (occurrence: None)
  Receive Date: 20150824
  Receipt Date: 20150824
  Transmission Date: 20151125
  Serious: Yes (Disabling)
  Sender: FDA-Public Use
  Company Number: None

PATIENT
  Age: 58 Year
  Sex: Female
  Weight: 70.31 kg

DRUGS (2)
  1. CIPRO XR [Suspect]
     Active Substance: CIPROFLOXACIN\CIPROFLOXACIN HYDROCHLORIDE
     Indication: URINARY TRACT INFECTION
     Dosage: 1 A DAY FOR 5 DAYS
     Route: 048
     Dates: start: 20040301, end: 20040305
  2. CLONAZEPAM. [Concomitant]
     Active Substance: CLONAZEPAM

REACTIONS (7)
  - Burning sensation [None]
  - Insomnia [None]
  - Paraesthesia [None]
  - Balance disorder [None]
  - Hypoacusis [None]
  - Dysgeusia [None]
  - Neuropathy peripheral [None]

NARRATIVE: CASE EVENT DATE: 20040301
